FAERS Safety Report 5096833-1 (Version None)
Quarter: 2006Q3

REPORT INFORMATION
  Report Type: 
  Country: None (occurrence: None)
  Receive Date: 20060831
  Receipt Date: 20060818
  Transmission Date: 20061208
  Serious: Yes (Hospitalization)
  Sender: FDA-Public Use
  Company Number: 2006BI011944

PATIENT
  Age: 49 Year
  Sex: Female
  Weight: 69.8539 kg

DRUGS (1)
  1. NATALIZUMAB [Suspect]
     Indication: MULTIPLE SCLEROSIS
     Dosage: QM;IV
     Route: 042
     Dates: start: 20050113, end: 20050201

REACTIONS (4)
  - FALL [None]
  - FIBULA FRACTURE [None]
  - OEDEMA PERIPHERAL [None]
  - TIBIA FRACTURE [None]
